FAERS Safety Report 5116847-2 (Version None)
Quarter: 2006Q3

REPORT INFORMATION
  Report Type: 
  Country: None (occurrence: None)
  Receive Date: 20060925
  Receipt Date: 20060911
  Transmission Date: 20061208
  Serious: Yes (Death, Hospitalization, Other)
  Sender: FDA-Public Use
  Company Number: 2006109521

PATIENT
  Sex: Male

DRUGS (4)
  1. SUTENT [Suspect]
     Indication: RENAL CELL CARCINOMA STAGE UNSPECIFIED
     Dosage: 50 MG (50 MG, 1 IN 1 D)
  2. NORCO [Concomitant]
  3. LOSARTAN POSTASSIUM [Concomitant]
  4. OXYGEN [Concomitant]

REACTIONS (4)
  - BLOOD PRESSURE INCREASED [None]
  - DRUG DOSE OMISSION [None]
  - EPISTAXIS [None]
  - HAEMORRHAGE [None]
